FAERS Safety Report 10669063 (Version 3)
Quarter: 2016Q1

REPORT INFORMATION
  Report Type: Report from Study
  Country: US (occurrence: US)
  Receive Date: 20141222
  Receipt Date: 20160104
  Transmission Date: 20160525
  Serious: Yes (Hospitalization)
  Sender: FDA-Public Use
  Company Number: US-SA-2014SA158420

PATIENT
  Age: 52 Year
  Sex: Female

DRUGS (2)
  1. AUBAGIO [Suspect]
     Active Substance: TERIFLUNOMIDE
     Indication: MULTIPLE SCLEROSIS
     Route: 048
     Dates: start: 20141110
  2. AUBAGIO [Suspect]
     Active Substance: TERIFLUNOMIDE
     Indication: MULTIPLE SCLEROSIS
     Route: 048
     Dates: start: 201508

REACTIONS (6)
  - Diarrhoea [Unknown]
  - Urinary tract infection [Recovering/Resolving]
  - Visual impairment [Not Recovered/Not Resolved]
  - Pyrexia [Unknown]
  - Headache [Recovering/Resolving]
  - Peripheral coldness [Not Recovered/Not Resolved]

NARRATIVE: CASE EVENT DATE: 2014
